FAERS Safety Report 13532836 (Version 2)
Quarter: 2018Q1

REPORT INFORMATION
  Report Type: Report from Study
  Country: US (occurrence: US)
  Receive Date: 20170510
  Receipt Date: 20180314
  Transmission Date: 20180508
  Serious: Yes (Hospitalization, Other)
  Sender: FDA-Public Use
  Company Number: US-BAYER-2016-020906

PATIENT
  Age: 64 Year
  Sex: Male

DRUGS (19)
  1. STIVARGA [Suspect]
     Active Substance: REGORAFENIB
     Indication: COLON CANCER
     Dosage: 80 MG DAILY FOR 21 DAYS ON, 7 DAYS OFF
     Route: 048
     Dates: start: 20170215, end: 201802
  2. GLIMEPIRIDE. [Concomitant]
     Active Substance: GLIMEPIRIDE
  3. AMITIZA [Concomitant]
     Active Substance: LUBIPROSTONE
  4. LISINOPRIL. [Concomitant]
     Active Substance: LISINOPRIL
  5. ASPIRIN. [Concomitant]
     Active Substance: ASPIRIN
  6. STIVARGA [Suspect]
     Active Substance: REGORAFENIB
     Indication: COLON CANCER
     Dosage: 160 MG, QD ( X 21 DAYS EVERY 28 DAYS)
     Route: 048
     Dates: start: 20160128, end: 20160210
  7. STIVARGA [Suspect]
     Active Substance: REGORAFENIB
     Indication: COLON CANCER
     Dosage: 40 MG, QD
     Route: 048
     Dates: start: 20160226
  8. STIVARGA [Suspect]
     Active Substance: REGORAFENIB
     Indication: COLON CANCER
     Dosage: 160 MG, QD ( X 21 DAYS EVERY 28 DAYS)
     Route: 048
  9. CIPROFLOXACIN. [Concomitant]
     Active Substance: CIPROFLOXACIN
     Dosage: UNK
  10. CLOTRIMAZOLE W/BETAMETHASONE DIPROPIONAT [Concomitant]
     Dosage: UNK
  11. TAMSULOSIN [Concomitant]
     Active Substance: TAMSULOSIN
  12. METFORMIN [Concomitant]
     Active Substance: METFORMIN HYDROCHLORIDE
  13. FENOFIBRATE. [Concomitant]
     Active Substance: FENOFIBRATE
  14. KETOCONAZOLE. [Concomitant]
     Active Substance: KETOCONAZOLE
  15. STIVARGA [Suspect]
     Active Substance: REGORAFENIB
     Indication: COLON CANCER
     Dosage: 160 MG, DAILY
     Route: 048
     Dates: start: 201601, end: 201601
  16. STIVARGA [Suspect]
     Active Substance: REGORAFENIB
     Indication: COLON CANCER
     Dosage: 80 MG, QD (3 WEEKS THEN 1 WEEK OFF)
     Route: 048
     Dates: start: 20160712, end: 20170206
  17. SIMVASTATIN. [Concomitant]
     Active Substance: SIMVASTATIN
  18. HYDROCODONE BITARTRATE AND ACETAMINOPHEN [Concomitant]
     Active Substance: ACETAMINOPHEN\HYDROCODONE BITARTRATE
  19. GABAPENTIN. [Concomitant]
     Active Substance: GABAPENTIN

REACTIONS (17)
  - Localised infection [Not Recovered/Not Resolved]
  - Pain in extremity [Not Recovered/Not Resolved]
  - Blood pressure increased [Not Recovered/Not Resolved]
  - Skin burning sensation [Recovered/Resolved]
  - Plantar erythema [Not Recovered/Not Resolved]
  - Pain [Not Recovered/Not Resolved]
  - Palmar-plantar erythrodysaesthesia syndrome [Not Recovered/Not Resolved]
  - Palmar-plantar erythrodysaesthesia syndrome [Not Recovered/Not Resolved]
  - Malaise [None]
  - Erythema [Recovered/Resolved]
  - Pain in extremity [Recovered/Resolved]
  - Colon cancer [None]
  - Dysphonia [Not Recovered/Not Resolved]
  - Aphonia [None]
  - Hospitalisation [None]
  - Diarrhoea [Not Recovered/Not Resolved]
  - Decreased activity [None]

NARRATIVE: CASE EVENT DATE: 20160114
